FAERS Safety Report 22104096 (Version 1)
Quarter: 2023Q1

REPORT INFORMATION
  Report Type: Spontaneous
  Country: US (occurrence: None)
  Receive Date: 20230315
  Receipt Date: 20230315
  Transmission Date: 20230418
  Serious: Yes (Other)
  Sender: FDA-Public Use
  Company Number: None

PATIENT
  Age: 28 Year
  Sex: Female
  Weight: 52.16 kg

DRUGS (1)
  1. VYVANSE [Suspect]
     Active Substance: LISDEXAMFETAMINE DIMESYLATE
     Indication: Attention deficit hyperactivity disorder
     Dates: end: 20230303

REACTIONS (7)
  - Headache [None]
  - Fatigue [None]
  - Acne [None]
  - Mood swings [None]
  - Drug ineffective [None]
  - Intermenstrual bleeding [None]
  - Abnormal menstrual clots [None]

NARRATIVE: CASE EVENT DATE: 20230304
